FAERS Safety Report 18582086 (Version 4)
Quarter: 2021Q1

REPORT INFORMATION
  Report Type: Report from Study
  Country: US (occurrence: US)
  Receive Date: 20201204
  Receipt Date: 20210304
  Transmission Date: 20210419
  Serious: Yes (Other)
  Sender: FDA-Public Use
  Company Number: US-TAKEDA-US202016838

PATIENT
  Sex: Female

DRUGS (2)
  1. HUMAN NORMAL IMMUNOGLOBULIN; LIQUID [Suspect]
     Active Substance: HUMAN IMMUNOGLOBULIN G
     Indication: PRIMARY IMMUNODEFICIENCY SYNDROME
  2. HUMAN NORMAL IMMUNOGLOBULIN; LIQUID [Suspect]
     Active Substance: HUMAN IMMUNOGLOBULIN G
     Indication: HYPOGAMMAGLOBULINAEMIA
     Dosage: UNK, UNKNOWN
     Route: 042

REACTIONS (16)
  - Inability to afford medication [Unknown]
  - Device dislocation [Unknown]
  - Anaemia [Unknown]
  - Device occlusion [Unknown]
  - Feeling abnormal [Unknown]
  - Joint injury [Unknown]
  - Blood insulin decreased [Unknown]
  - Epilepsy [Unknown]
  - Renal function test abnormal [Unknown]
  - Inappropriate schedule of product administration [Unknown]
  - Herpes zoster [Unknown]
  - Insurance issue [Unknown]
  - Infusion related reaction [Unknown]
  - Malaise [Unknown]
  - Nausea [Recovered/Resolved]
  - Product dose omission issue [Unknown]
